FAERS Safety Report 23552367 (Version 3)
Quarter: 2024Q4

REPORT INFORMATION
  Report Type: Report from Study
  Country: CA (occurrence: CA)
  Receive Date: 20240222
  Receipt Date: 20241217
  Transmission Date: 20250114
  Serious: Yes (Hospitalization, Other)
  Sender: GILEAD
  Company Number: CA-GLAXOSMITHKLINE-CA2024AMR019199

PATIENT
  Age: 48 Year
  Sex: Female

DRUGS (2)
  1. AMBRISENTAN [Suspect]
     Active Substance: AMBRISENTAN
     Indication: Pulmonary arterial hypertension
     Dosage: 10 MG, QD
     Route: 048
     Dates: start: 20181107
  2. CHLORHEXIDINE [Suspect]
     Active Substance: CHLORHEXIDINE
     Indication: Product used for unknown indication
     Dosage: UNK
     Route: 065

REACTIONS (8)
  - Vascular device occlusion [Unknown]
  - Central venous catheterisation [Unknown]
  - Erythema [Unknown]
  - Skin induration [Unknown]
  - Swelling [Unknown]
  - Tenderness [Unknown]
  - Skin irritation [Unknown]
  - Discharge [Unknown]
